FAERS Safety Report 19892682 (Version 14)
Quarter: 2022Q4

REPORT INFORMATION
  Report Type: Report from Study
  Country: CA (occurrence: CA)
  Receive Date: 20210928
  Receipt Date: 20221128
  Transmission Date: 20230112
  Serious: Yes (Hospitalization, Other)
  Sender: FDA-Public Use
  Company Number: CA-OTSUKA-2021_029715

PATIENT
  Age: 73 Year
  Sex: Male

DRUGS (1)
  1. CEDAZURIDINE\DECITABINE [Suspect]
     Active Substance: CEDAZURIDINE\DECITABINE
     Indication: Myelodysplastic syndrome
     Dosage: UNK
     Route: 065
     Dates: start: 20210821

REACTIONS (13)
  - Transfusion [Not Recovered/Not Resolved]
  - Biopsy bone marrow [Unknown]
  - Red blood cell transfusion [Unknown]
  - Acute myeloid leukaemia [Unknown]
  - Cellulitis [Unknown]
  - Pancytopenia [Unknown]
  - Neutrophil count decreased [Unknown]
  - Anal abscess [Unknown]
  - Somnolence [Unknown]
  - Feeling abnormal [Unknown]
  - Skin infection [Unknown]
  - Fatigue [Unknown]
  - Anaemia [Unknown]

NARRATIVE: CASE EVENT DATE: 20220110
